FAERS Safety Report 22085266 (Version 1)
Quarter: 2023Q1

REPORT INFORMATION
  Report Type: Report from Study
  Country: KR (occurrence: KR)
  Receive Date: 20230310
  Receipt Date: 20230310
  Transmission Date: 20230418
  Serious: Yes (Hospitalization)
  Sender: FDA-Public Use
  Company Number: KR-GLAXOSMITHKLINE-KR2023GSK037055

PATIENT

DRUGS (18)
  1. FLUTICASONE FUROATE\UMECLIDINIUM BROMIDE\VILANTEROL TRIFENATATE [Suspect]
     Active Substance: FLUTICASONE FUROATE\UMECLIDINIUM BROMIDE\VILANTEROL TRIFENATATE
     Indication: Chronic obstructive pulmonary disease
     Dosage: UNK, QD
     Route: 055
     Dates: start: 20220125
  2. PREDNISOLONE [Concomitant]
     Active Substance: PREDNISOLONE
     Indication: Chronic obstructive pulmonary disease
     Dosage: 5 MG, BID
     Route: 048
     Dates: start: 20220712, end: 20220725
  3. ERDOSTEINE [Concomitant]
     Active Substance: ERDOSTEINE
     Indication: Chronic obstructive pulmonary disease
     Dosage: 300 MG, BID
     Route: 048
     Dates: start: 20220419
  4. ERDOSTEINE [Concomitant]
     Active Substance: ERDOSTEINE
     Indication: Productive cough
  5. ROFLUMILAST [Concomitant]
     Active Substance: ROFLUMILAST
     Indication: Chronic obstructive pulmonary disease
     Dosage: 0.5 MG, QD
     Route: 048
     Dates: start: 20220419
  6. SINGULAIR [Concomitant]
     Active Substance: MONTELUKAST SODIUM
     Indication: Chronic obstructive pulmonary disease
     Dosage: 10 MG, QD
     Route: 048
     Dates: start: 20130215
  7. VENTOLIN [Concomitant]
     Active Substance: ALBUTEROL SULFATE
     Indication: Chronic obstructive pulmonary disease
     Dosage: UNK, QID
     Route: 055
     Dates: start: 20220125
  8. PROPIVERINE [Concomitant]
     Active Substance: PROPIVERINE
     Indication: Neurogenic bladder
     Dosage: 10 MG, QD
     Route: 048
     Dates: start: 20220609
  9. FINASTERIDE [Concomitant]
     Active Substance: FINASTERIDE
     Indication: Benign prostatic hyperplasia
     Dosage: 5 MG, QD
     Route: 048
     Dates: start: 20220609
  10. LINAGLIPTIN [Concomitant]
     Active Substance: LINAGLIPTIN
     Indication: Type 2 diabetes mellitus
     Dosage: 5 MG, QD
     Route: 048
     Dates: start: 20210916
  11. DICAMAX D [Concomitant]
     Indication: Osteoporosis
     Dosage: UNK, QD
     Route: 048
     Dates: start: 20220419
  12. XYZAL [Concomitant]
     Active Substance: LEVOCETIRIZINE DIHYDROCHLORIDE
     Indication: Rhinitis allergic
     Dosage: 5 MG, QD
     Route: 048
     Dates: start: 20220115
  13. OZEX [Concomitant]
     Indication: Bladder cancer
     Dosage: 150 MG, QID
     Route: 048
     Dates: start: 20220512
  14. PRAVASTATIN SODIUM [Concomitant]
     Active Substance: PRAVASTATIN SODIUM
     Indication: Dyslipidaemia
     Dosage: 20 MG, QD
     Route: 048
     Dates: start: 20130629
  15. ASPIRIN [Concomitant]
     Active Substance: ASPIRIN
     Indication: Hypertension
     Dosage: 100 MG, QD
     Route: 048
     Dates: start: 20081008
  16. GASTIIN CR [Concomitant]
     Indication: Oesophagitis
     Dosage: 15 MG, QD
     Route: 048
     Dates: start: 20220512
  17. NOLTEC [Concomitant]
     Indication: Oesophagitis
     Dosage: 10 MG, BID
     Route: 048
     Dates: start: 20220512
  18. PELUBI CR [Concomitant]
     Indication: Bladder cancer
     Dosage: 45 MG, BID
     Route: 048
     Dates: start: 20220512

REACTIONS (1)
  - Calculus bladder [Recovered/Resolved]

NARRATIVE: CASE EVENT DATE: 20220908
